FAERS Safety Report 7691382-6 (Version None)
Quarter: 2011Q3

REPORT INFORMATION
  Report Type: 
  Country: None (occurrence: None)
  Receive Date: 20110818
  Receipt Date: 20110810
  Transmission Date: 20111222
  Serious: Yes (Life-Threatening, Hospitalization, Other)
  Sender: FDA-Public Use
  Company Number: PHHY2011SE72770

PATIENT
  Age: 61 Year
  Sex: Male

DRUGS (8)
  1. CYCLOSPORINE [Suspect]
     Indication: STEM CELL TRANSPLANT
  2. FRESH FROZEN PLASMA [Concomitant]
     Dosage: 7 U, UNK
  3. FLUDARABINE PHOSPHATE [Concomitant]
     Dosage: 30 MG/M2, FOR 6 CONSECUTIVE DAYS
  4. PLATELETS [Concomitant]
     Dosage: 12 U, UNK
  5. ANTI-THYMOCYTE GLOBULIN NOS [Concomitant]
     Dosage: 5.5 MG/KG, UNK
  6. METHOTREXATE [Concomitant]
     Indication: STEM CELL TRANSPLANT
  7. ERYTHROCYTES [Concomitant]
     Dosage: 17 U, UNK
  8. BU [Concomitant]
     Dosage: 4 MG/KG, FOR 2 CONSECUTIVE DAYS

REACTIONS (12)
  - GASTROINTESTINAL HAEMORRHAGE [None]
  - WHITE BLOOD CELL COUNT DECREASED [None]
  - BLOOD BILIRUBIN INCREASED [None]
  - EPISTAXIS [None]
  - BONE MARROW TRANSPLANT REJECTION [None]
  - HAEMORRHAGE [None]
  - HEPATOTOXICITY [None]
  - BLOOD STEM CELL TRANSPLANT FAILURE [None]
  - SMALL INTESTINAL HAEMORRHAGE [None]
  - MELAENA [None]
  - POST PROCEDURAL COMPLICATION [None]
  - PLATELET COUNT DECREASED [None]
